FAERS Safety Report 11482157 (Version 1)
Quarter: 2015Q3

REPORT INFORMATION
  Report Type: Spontaneous
  Country: CA (occurrence: CA)
  Receive Date: 20150909
  Receipt Date: 20150909
  Transmission Date: 20151125
  Serious: Yes (Disabling, Other)
  Sender: FDA-Public Use
  Company Number: CA-TEVA-592024ACC

PATIENT
  Age: 17 Year
  Sex: Female
  Weight: 60 kg

DRUGS (26)
  1. CYCLOPHOSPHAMIDE. [Concomitant]
     Active Substance: CYCLOPHOSPHAMIDE
  2. ETHINYL ESTRADIOL - NORETHINDRONE ACETATE [Concomitant]
  3. FOLIC ACID. [Concomitant]
     Active Substance: FOLIC ACID
  4. GRANISETRON [Concomitant]
     Active Substance: GRANISETRON
  5. ACETAMINOPHEN AND CODEINE [Concomitant]
     Active Substance: ACETAMINOPHEN\CODEINE PHOSPHATE
  6. VINCRISTINE SULFATE INJECTION USP [Suspect]
     Active Substance: VINCRISTINE SULFATE
     Indication: HODGKIN^S DISEASE
     Route: 042
  7. ETOPOSIDE INJECTION, USP [Concomitant]
     Active Substance: ETOPOSIDE
  8. ONDANSETRON [Concomitant]
     Active Substance: ONDANSETRON
  9. TRANEXAMIC ACID. [Concomitant]
     Active Substance: TRANEXAMIC ACID
  10. ACETAMINOPHEN. [Concomitant]
     Active Substance: ACETAMINOPHEN
  11. ESTRADIOL-17B [Concomitant]
  12. DOCUSATE [Concomitant]
     Active Substance: DOCUSATE
  13. METOCLOPRAMIDE. [Concomitant]
     Active Substance: METOCLOPRAMIDE
  14. TRIMETHOPRIM-SULFAMETHOXAZOLE [Concomitant]
     Active Substance: SULFAMETHOXAZOLE\TRIMETHOPRIM
  15. DESOGESTREL/ETHINYL ESTRADIOL [Concomitant]
     Active Substance: DESOGESTREL\ETHINYL ESTRADIOL
  16. DOXORUBICIN HYDROCHLORIDE INJECTION [Concomitant]
     Active Substance: DOXORUBICIN HYDROCHLORIDE
  17. GRANULOCYTE COLONY STIMULATING FACTOR (G-CSF) [Concomitant]
  18. LANSOPRAZOLE. [Concomitant]
     Active Substance: LANSOPRAZOLE
  19. MELATONIN [Concomitant]
     Active Substance: MELATONIN
  20. PREDNISONE. [Concomitant]
     Active Substance: PREDNISONE
  21. BLEOMYCIN SULPHATE FOR INJECTION USP [Concomitant]
  22. EMEND [Concomitant]
     Active Substance: APREPITANT
  23. ETHINYLESTRADIOL/LEVONORGESTREL [Concomitant]
     Active Substance: ETHINYL ESTRADIOL\LEVONORGESTREL
  24. NABILONE [Concomitant]
     Active Substance: NABILONE
  25. DIMENHYDRINATE. [Concomitant]
     Active Substance: DIMENHYDRINATE
  26. LORAZEPAM. [Concomitant]
     Active Substance: LORAZEPAM

REACTIONS (7)
  - Hyporeflexia [Recovered/Resolved]
  - Posture abnormal [Recovered/Resolved]
  - Gait disturbance [Recovered/Resolved]
  - Pain in extremity [Recovered/Resolved]
  - Muscular weakness [Recovered/Resolved]
  - Paraesthesia [Recovered/Resolved]
  - Neuropathy peripheral [Recovered/Resolved]
